FAERS Safety Report 7966232-0 (Version None)
Quarter: 2011Q4

REPORT INFORMATION
  Report Type: 
  Country: None (occurrence: None)
  Receive Date: 20111208
  Receipt Date: 20111130
  Transmission Date: 20120403
  Serious: Yes (Other)
  Sender: FDA-Public Use
  Company Number: JP-JNJFOC-20111201783

PATIENT
  Age: 29 Year
  Sex: Female

DRUGS (2)
  1. OXYCODONE HCL [Interacting]
     Indication: TUMOUR PAIN
     Route: 048
  2. ITRACONAZOLE [Suspect]
     Indication: ORAL CANDIDIASIS
     Route: 048

REACTIONS (3)
  - DRUG INTERACTION [None]
  - VOMITING [None]
  - HALLUCINATION [None]
